FAERS Safety Report 10061028 (Version 3)
Quarter: 2014Q2

REPORT INFORMATION
  Report Type: Spontaneous
  Country: US (occurrence: US)
  Receive Date: 20140405
  Receipt Date: 20140520
  Transmission Date: 20141212
  Serious: Yes (Other)
  Sender: FDA-Public Use
  Company Number: US-ROCHE-1360381

PATIENT
  Age: 56 Year
  Sex: Female

DRUGS (8)
  1. PEGASYS [Suspect]
     Indication: CHRONIC HEPATITIS C
     Route: 058
     Dates: start: 20140301
  2. RIBAPAK [Suspect]
     Indication: CHRONIC HEPATITIS C
     Dosage: DOSE- 600 AT MORNING AND AT EVENING 400MG
     Route: 048
     Dates: start: 20140301
  3. SOVALDI [Suspect]
     Indication: CHRONIC HEPATITIS C
     Route: 048
     Dates: start: 20140301
  4. METFORMIN [Concomitant]
     Indication: TYPE 2 DIABETES MELLITUS
  5. LANTUS [Concomitant]
     Indication: TYPE 2 DIABETES MELLITUS
  6. LEXAPRO [Concomitant]
  7. COREG [Concomitant]
  8. HYDROCHLOROTHIAZIDE [Concomitant]

REACTIONS (9)
  - Influenza like illness [Recovered/Resolved]
  - Swollen tongue [Not Recovered/Not Resolved]
  - Glossitis [Not Recovered/Not Resolved]
  - Fatigue [Unknown]
  - Pain [Unknown]
  - Headache [Unknown]
  - Nausea [Unknown]
  - Contusion [Unknown]
  - Bacterial infection [Unknown]
